FAERS Safety Report 5021564-3 (Version None)
Quarter: 2006Q2

REPORT INFORMATION
  Report Type: 
  Country: None (occurrence: None)
  Receive Date: 20060608
  Receipt Date: 20060601
  Transmission Date: 20061013
  Serious: Yes (Hospitalization)
  Sender: FDA-Public Use
  Company Number: GB-ABBOTT-06P-167-0334877-00

PATIENT
  Sex: Male
  Weight: 61 kg

DRUGS (9)
  1. HUMIRA [Suspect]
     Indication: RHEUMATOID ARTHRITIS
     Route: 058
     Dates: start: 20040706
  2. SULFASALAZINE [Concomitant]
     Indication: RHEUMATOID ARTHRITIS
  3. LEKOVIT CA [Concomitant]
     Indication: PROPHYLAXIS
  4. FOLIC ACID [Concomitant]
     Indication: VITAMIN SUPPLEMENTATION
  5. ALENDRONATE SODIUM [Concomitant]
     Indication: PROPHYLAXIS
  6. METHOTREXATE [Concomitant]
     Indication: RHEUMATOID ARTHRITIS
  7. OXYBUTYNIN [Concomitant]
     Indication: POLLAKIURIA
     Dates: start: 20050101, end: 20051106
  8. OXYBUTYNIN [Concomitant]
     Indication: PROSTATECTOMY
     Dates: end: 20060101
  9. COMMERCIAL HUMIRA [Concomitant]
     Indication: RHEUMATOID ARTHRITIS
     Route: 058
     Dates: start: 20040105

REACTIONS (1)
  - CALCULUS BLADDER [None]
